FAERS Safety Report 21988215 (Version 4)
Quarter: 2024Q4

REPORT INFORMATION
  Report Type: Spontaneous
  Country: BR (occurrence: BR)
  Receive Date: 20230214
  Receipt Date: 20241205
  Transmission Date: 20250115
  Serious: Yes (Death, Other)
  Sender: CELLTRION
  Company Number: BR-CELLTRION INC.-2023BR002918

PATIENT

DRUGS (9)
  1. HERZUMA [Suspect]
     Active Substance: TRASTUZUMAB-PKRB
     Indication: Breast cancer female
     Dosage: 408 MILLIGRAM PER CYCLE EVERY 21 DAYS
     Route: 042
     Dates: start: 20221215
  2. PERTUZUMAB [Concomitant]
     Active Substance: PERTUZUMAB
     Dosage: 420 MG, EVERY 21 DAYS CYCLIC
     Route: 042
     Dates: start: 20221215
  3. PACLITAXEL [Concomitant]
     Active Substance: PACLITAXEL
     Dosage: 135 MILLIGRAM, EVERY 21 DAYS CYCLIC
     Route: 042
     Dates: start: 20221215
  4. ACETAMINOPHEN [Concomitant]
     Active Substance: ACETAMINOPHEN
     Indication: Premedication
     Dosage: UNK
  5. SODIUM CHLORIDE [Concomitant]
     Active Substance: SODIUM CHLORIDE
     Indication: Premedication
  6. ONDANSETRON [Concomitant]
     Active Substance: ONDANSETRON
     Indication: Premedication
     Dosage: UNK
  7. CIMETIDINE [Concomitant]
     Active Substance: CIMETIDINE
     Indication: Premedication
  8. DEXAMETHASONE [Concomitant]
     Active Substance: DEXAMETHASONE
     Indication: Premedication
  9. DEXCHLORPHENIRAMINE [Concomitant]
     Active Substance: DEXCHLORPHENIRAMINE
     Indication: Premedication
     Dosage: CYCLE: 2D1 PROTOCOL: THP FREQUENCY: 4 CYCLES. INTERVAL 21 DAYS

REACTIONS (7)
  - Breast cancer female [Fatal]
  - Hypoxia [Recovered/Resolved]
  - Tachycardia [Recovered/Resolved]
  - Hypertension [Recovered/Resolved]
  - Chills [Recovered/Resolved]
  - Dyspnoea [Recovered/Resolved]
  - Chest pain [Recovered/Resolved]

NARRATIVE: CASE EVENT DATE: 20230127
